FAERS Safety Report 5690968-8 (Version None)
Quarter: 2008Q2

REPORT INFORMATION
  Report Type: 
  Country: None (occurrence: None)
  Receive Date: 20080401
  Receipt Date: 20080327
  Transmission Date: 20081010
  Serious: Yes (Death, Hospitalization)
  Sender: FDA-Public Use
  Company Number: AU-ALLERGAN-0802055US

PATIENT
  Sex: Female

DRUGS (4)
  1. BOTOX [Suspect]
     Indication: DRUG USE FOR UNKNOWN INDICATION
     Dosage: 295 UNITS, SINGLE
     Route: 030
     Dates: start: 20050429, end: 20050429
  2. DDAVP [Concomitant]
  3. LEVOTHYROXINE SODIUM [Concomitant]
  4. CORTISONE [Concomitant]

REACTIONS (1)
  - DIAPHRAGMATIC HERNIA [None]
